FAERS Safety Report 10929941 (Version 1)
Quarter: 2015Q1

REPORT INFORMATION
  Report Type: Spontaneous
  Country: ES (occurrence: ES)
  Receive Date: 20150319
  Receipt Date: 20150319
  Transmission Date: 20150721
  Serious: Yes (Other)
  Sender: FDA-Public Use
  Company Number: ES-MERCK-1503ESP006505

PATIENT
  Age: 44 Year
  Sex: Female

DRUGS (3)
  1. PEGASYS [Interacting]
     Active Substance: PEGINTERFERON ALFA-2A
     Indication: HEPATITIS C
     Dosage: 135 MICROGRAM, UNK
     Route: 065
     Dates: start: 20141205
  2. RIBAVIRIN. [Suspect]
     Active Substance: RIBAVIRIN
     Indication: HEPATITIS C
     Dosage: UNK
     Route: 065
     Dates: start: 20141205
  3. OLYSIO [Interacting]
     Active Substance: SIMEPREVIR
     Indication: HEPATITIS C
     Dosage: 150 MG DAILY
     Route: 048
     Dates: start: 20141205

REACTIONS (3)
  - Drug interaction [Unknown]
  - Jaundice [Unknown]
  - Hyperbilirubinaemia [Unknown]

NARRATIVE: CASE EVENT DATE: 20141219
